FAERS Safety Report 16436270 (Version 2)
Quarter: 2019Q2

REPORT INFORMATION
  Report Type: Spontaneous
  Country: US (occurrence: US)
  Receive Date: 20190614
  Receipt Date: 20190625
  Transmission Date: 20190711
  Serious: No
  Sender: FDA-Public Use
  Company Number: US-JNJFOC-20190616092

PATIENT
  Age: 7 Decade
  Sex: Female
  Weight: 59.02 kg

DRUGS (1)
  1. MINOXIDIL. [Suspect]
     Active Substance: MINOXIDIL
     Indication: ALOPECIA
     Dosage: 1/2 CAPFUL
     Route: 061

REACTIONS (3)
  - Poor quality product administered [Unknown]
  - Product storage error [Unknown]
  - Hair texture abnormal [Not Recovered/Not Resolved]
